FAERS Safety Report 7630346-5 (Version None)
Quarter: 2011Q3

REPORT INFORMATION
  Report Type: 
  Country: None (occurrence: None)
  Receive Date: 20110722
  Receipt Date: 20110718
  Transmission Date: 20111222
  Serious: Yes (Hospitalization)
  Sender: FDA-Public Use
  Company Number: FR-BAYER-2011-062817

PATIENT
  Age: 81 Year
  Sex: Male

DRUGS (11)
  1. PLAVIX [Suspect]
     Dosage: UNK
     Dates: start: 20110609
  2. AMOXICILLIN [Concomitant]
     Route: 048
  3. PLAVIX [Suspect]
     Dosage: 75 MG, QD
     Route: 048
     Dates: end: 20110531
  4. CLARITHROMYCIN [Concomitant]
     Route: 048
  5. PREVISCAN [Suspect]
     Dosage: 20 MG, QD
     Route: 048
     Dates: end: 20110531
  6. PREVISCAN [Suspect]
     Dosage: UNK
     Dates: start: 20110607
  7. PIPERACILLIN AND TAZOBACTAM [Concomitant]
     Indication: URINARY TRACT INFECTION
     Dosage: UNK
     Route: 042
     Dates: start: 20110531
  8. AMOXICILLIN [Concomitant]
     Indication: URINARY TRACT INFECTION
     Dosage: UNK
     Route: 042
     Dates: start: 20110531
  9. CLARITHROMYCIN [Concomitant]
     Dosage: UNK
     Route: 042
     Dates: start: 20110531
  10. PIPERACILLIN AND TAZOBACTAM [Concomitant]
     Route: 048
  11. CIPROFLOXACIN [Suspect]
     Indication: URINARY TRACT INFECTION
     Dosage: UNK
     Route: 048
     Dates: start: 20110501

REACTIONS (3)
  - MELAENA [None]
  - ANAEMIA [None]
  - INTERNATIONAL NORMALISED RATIO INCREASED [None]
